FAERS Safety Report 5451522-6 (Version None)
Quarter: 2007Q3

REPORT INFORMATION
  Report Type: 
  Country: None (occurrence: None)
  Receive Date: 20070913
  Receipt Date: 20070404
  Transmission Date: 20080115
  Serious: No
  Sender: FDA-Public Use
  Company Number: US-BRISTOL-MYERS SQUIBB COMPANY-13738299

PATIENT
  Sex: Male
  Weight: 109 kg

DRUGS (2)
  1. LAC-HYDRIN [Suspect]
     Indication: ICHTHYOSIS
  2. TAZOBACTAM [Concomitant]

REACTIONS (1)
  - PHARMACEUTICAL PRODUCT COMPLAINT [None]
